FAERS Safety Report 9310438 (Version 1)
Quarter: 2013Q2

REPORT INFORMATION
  Report Type: Spontaneous
  Country: US (occurrence: US)
  Receive Date: 20130527
  Receipt Date: 20130527
  Transmission Date: 20140414
  Serious: No
  Sender: FDA-Public Use
  Company Number: US-PFIZER INC-2013160511

PATIENT
  Age: 39 Year
  Sex: Male
  Weight: 83.9 kg

DRUGS (3)
  1. LYRICA [Suspect]
     Indication: NEURALGIA
     Dosage: 75 MG, 2X/DAY
     Route: 048
  2. ADVIL [Concomitant]
     Dosage: UNK
  3. TYLENOL [Concomitant]
     Dosage: UNK

REACTIONS (1)
  - Pain [Unknown]
